FAERS Safety Report 10213573 (Version 1)
Quarter: 2014Q2

REPORT INFORMATION
  Report Type: Spontaneous
  Country: US (occurrence: None)
  Receive Date: 20140602
  Receipt Date: 20140602
  Transmission Date: 20141212
  Serious: Yes (Life-Threatening, Hospitalization)
  Sender: FDA-Public Use
  Company Number: None

PATIENT
  Age: 29 Year
  Sex: Female
  Weight: 77.11 kg

DRUGS (1)
  1. NUVA RING MERCK [Suspect]
     Indication: CONTRACEPTION
     Route: 067
     Dates: start: 20120601, end: 20140515

REACTIONS (5)
  - Pulmonary embolism [None]
  - Impaired work ability [None]
  - Anxiety [None]
  - Stress [None]
  - Family stress [None]
